FAERS Safety Report 5838199-2 (Version None)
Quarter: 2008Q3

REPORT INFORMATION
  Report Type: 
  Country: None (occurrence: None)
  Receive Date: 20080808
  Receipt Date: 20080729
  Transmission Date: 20090109
  Serious: Yes (Death, Hospitalization)
  Sender: FDA-Public Use
  Company Number: DE-JNJFOC-20070902547

PATIENT
  Age: 7 Decade
  Sex: Male

DRUGS (23)
  1. REMICADE [Suspect]
     Route: 042
  2. REMICADE [Suspect]
     Indication: RHEUMATOID ARTHRITIS
     Dosage: CUMMULATIVE DOSE 200 MG/800 MG.
     Route: 042
  3. METHOTREXATE [Suspect]
  4. METHOTREXATE [Suspect]
  5. METHOTREXATE [Suspect]
  6. METHOTREXATE [Suspect]
     Indication: RHEUMATOID ARTHRITIS
  7. LEF [Suspect]
  8. LEF [Suspect]
     Indication: RHEUMATOID ARTHRITIS
  9. ADALIMUMAB [Suspect]
     Dosage: 40 MG/400 MG.
  10. ADALIMUMAB [Suspect]
     Indication: RHEUMATOID ARTHRITIS
  11. OLMESARTAN MEDOXOMIL [Concomitant]
     Dosage: 20/12.5
  12. BISOHEXAL [Concomitant]
  13. AMLODIPINE [Concomitant]
  14. NEXIUM [Concomitant]
  15. PREDNISOLONE [Concomitant]
  16. CALCILAC [Concomitant]
  17. ALLOPURINOL [Concomitant]
  18. TOREM [Concomitant]
  19. TAMSUBLOCK [Concomitant]
  20. ZALDIAR [Concomitant]
     Dosage: 325
  21. MICARDIS [Concomitant]
     Indication: DRUG USE FOR UNKNOWN INDICATION
  22. FERRO SANOL [Concomitant]
     Indication: DRUG USE FOR UNKNOWN INDICATION
  23. HUMIRA [Concomitant]

REACTIONS (8)
  - ACUTE RESPIRATORY FAILURE [None]
  - CARDIAC ARREST [None]
  - CARDIAC FAILURE [None]
  - DEEP VEIN THROMBOSIS [None]
  - LUNG INFECTION PSEUDOMONAL [None]
  - OEDEMA PERIPHERAL [None]
  - RENAL FAILURE [None]
  - RENAL FAILURE ACUTE [None]
